FAERS Safety Report 16841424 (Version 1)
Quarter: 2019Q3

REPORT INFORMATION
  Report Type: Spontaneous
  Country: US (occurrence: US)
  Receive Date: 20190923
  Receipt Date: 20190923
  Transmission Date: 20191005
  Serious: No
  Sender: FDA-Public Use
  Company Number: US-PFIZER INC-2019407353

PATIENT
  Sex: Female

DRUGS (1)
  1. CIPROFLOXACIN. [Suspect]
     Active Substance: CIPROFLOXACIN
     Dosage: UNK

REACTIONS (6)
  - Arthralgia [Unknown]
  - Drug hypersensitivity [Unknown]
  - Candida infection [Unknown]
  - Pain in extremity [Unknown]
  - Diarrhoea [Unknown]
  - Abdominal pain upper [Unknown]
